FAERS Safety Report 5804223-6 (Version None)
Quarter: 2008Q3

REPORT INFORMATION
  Report Type: 
  Country: None (occurrence: None)
  Receive Date: 20080707
  Receipt Date: 20080620
  Transmission Date: 20090109
  Serious: Yes (Hospitalization)
  Sender: FDA-Public Use
  Company Number: 2008AL007746

PATIENT
  Age: 81 Year
  Sex: Male

DRUGS (10)
  1. CITALOPRAM HYDROBROMIDE [Suspect]
     Indication: DRUG USE FOR UNKNOWN INDICATION
     Dosage: 20 MD; QD; PO
     Route: 048
     Dates: start: 20080523
  2. BUPROPION HYDROCHLORIDE [Suspect]
     Indication: DEPRESSION
     Dosage: 150 MG; QD; PO
     Route: 048
     Dates: start: 20080511, end: 20080528
  3. PREDNISOLONE [Concomitant]
  4. FRAGMIN [Concomitant]
  5. LACTULOSE [Concomitant]
  6. SELEXID [Concomitant]
  7. SELO-ZOK [Concomitant]
  8. MONOKET OD [Concomitant]
  9. ACETAMINOPHEN [Concomitant]
  10. SIMVASTATIN [Concomitant]

REACTIONS (5)
  - FALL [None]
  - FATIGUE [None]
  - LOSS OF CONSCIOUSNESS [None]
  - PARTIAL SEIZURES [None]
  - SUBARACHNOID HAEMORRHAGE [None]
